FAERS Safety Report 9803206 (Version 1)
Quarter: 2014Q1

REPORT INFORMATION
  Report Type: Spontaneous
  Country: US (occurrence: None)
  Receive Date: 20140107
  Receipt Date: 20140107
  Transmission Date: 20141002
  Serious: Yes (Other)
  Sender: FDA-Public Use
  Company Number: None

PATIENT
  Age: 49 Year
  Sex: Female
  Weight: 52.16 kg

DRUGS (2)
  1. CYMBALTA [Suspect]
     Indication: NEUROPATHY PERIPHERAL
     Dosage: ONE PILL ONCE DAILY
     Route: 048
     Dates: start: 20131003, end: 20140116
  2. CYMBALTA [Suspect]
     Indication: VIRAL INFECTION
     Dosage: ONE PILL ONCE DAILY
     Route: 048
     Dates: start: 20131003, end: 20140116

REACTIONS (4)
  - Drug interaction [None]
  - Fall [None]
  - Memory impairment [None]
  - Fear [None]
